FAERS Safety Report 12352264 (Version 6)
Quarter: 2016Q2

REPORT INFORMATION
  Report Type: Report from Study
  Country: US (occurrence: US)
  Receive Date: 20160510
  Receipt Date: 20160630
  Transmission Date: 20160815
  Serious: Yes (Hospitalization)
  Sender: FDA-Public Use
  Company Number: US-PFIZER INC-2016238829

PATIENT
  Age: 60 Year
  Sex: Male
  Weight: 113 kg

DRUGS (7)
  1. TYLENOL WITH CODEINE [Concomitant]
     Active Substance: ACETAMINOPHEN\CODEINE PHOSPHATE
     Indication: ARTHRALGIA
     Dosage: [CODEINE PHOSPHATE 60MG]/ [PARACETAMOL 300MG],AS NEEDED EVERY 4 HOURS
     Route: 048
     Dates: start: 20150420, end: 20160301
  2. PALBOCICLIB [Suspect]
     Active Substance: PALBOCICLIB
     Indication: MANTLE CELL LYMPHOMA
     Dosage: 100 MG, QD ON DAYS 1-21 (28 DAYS CYCLE)
     Route: 048
     Dates: start: 20160202, end: 20160323
  3. ONDANSETRON [Concomitant]
     Active Substance: ONDANSETRON
     Indication: NAUSEA
     Dosage: UNK
     Route: 048
     Dates: start: 20160202
  4. IBRUTINIB [Suspect]
     Active Substance: IBRUTINIB
     Indication: MANTLE CELL LYMPHOMA REFRACTORY
     Dosage: 560 MG, 1X/DAY (28 DAYS CYCLE)
     Route: 048
     Dates: start: 20160202, end: 20160329
  5. NORCO [Suspect]
     Active Substance: ACETAMINOPHEN\HYDROCODONE BITARTRATE
     Indication: PAIN
     Dosage: [HYDROCODONE BITARTRATE 5MG]/ [PARACETAMOL 325 MG]; AS NEEDED EVERY SIX HOURS
     Route: 048
     Dates: start: 20151221, end: 20160411
  6. IOHEXOL [Concomitant]
     Active Substance: IOHEXOL
     Dosage: UNK
     Route: 048
     Dates: start: 20160404, end: 20160404
  7. FLUORODEOXYGLUCOSE F 18 [Concomitant]
     Active Substance: FLUDEOXYGLUCOSE F-18
     Dosage: 4-40MCI
     Dates: start: 20160404, end: 20160404

REACTIONS (1)
  - Alanine aminotransferase increased [Not Recovered/Not Resolved]

NARRATIVE: CASE EVENT DATE: 20160405
